FAERS Safety Report 6573878-3 (Version None)
Quarter: 2010Q1

REPORT INFORMATION
  Report Type: 
  Country: None (occurrence: None)
  Receive Date: 20100204
  Receipt Date: 20100204
  Transmission Date: 20100710
  Serious: No
  Sender: FDA-Public Use
  Company Number: None

PATIENT

DRUGS (2)
  1. NOVOLIN R [Suspect]
     Indication: HYPERGLYCAEMIA
     Dosage: 100 UNITS/ 100ML NS TITRATE IV DRIP
     Route: 041
     Dates: start: 20100120, end: 20100121
  2. NOVOLIN R [Suspect]
     Indication: POST PROCEDURAL COMPLICATION
     Dosage: 100 UNITS/ 100ML NS TITRATE IV DRIP
     Route: 041
     Dates: start: 20100120, end: 20100121

REACTIONS (2)
  - BLOOD GLUCOSE ABNORMAL [None]
  - PRODUCT COMPOUNDING QUALITY ISSUE [None]
